FAERS Safety Report 12759827 (Version 1)
Quarter: 2016Q3

REPORT INFORMATION
  Report Type: Spontaneous
  Country: US (occurrence: US)
  Receive Date: 20160919
  Receipt Date: 20160919
  Transmission Date: 20161109
  Serious: No
  Sender: FDA-Public Use
  Company Number: US-ASTRAZENECA-2016SE60527

PATIENT
  Age: 22 Year
  Sex: Male

DRUGS (12)
  1. ABILIFY [Suspect]
     Active Substance: ARIPIPRAZOLE
     Indication: ANXIETY
     Route: 065
     Dates: start: 2014
  2. PRILOSEC [Concomitant]
     Active Substance: OMEPRAZOLE MAGNESIUM
  3. REXULTI [Suspect]
     Active Substance: BREXPIPRAZOLE
     Indication: ANXIETY
     Route: 048
  4. XANAX [Concomitant]
     Active Substance: ALPRAZOLAM
  5. EFFEXOR [Suspect]
     Active Substance: VENLAFAXINE HYDROCHLORIDE
     Indication: AGORAPHOBIA
     Route: 065
  6. RISPERDAL [Suspect]
     Active Substance: RISPERIDONE
     Route: 065
  7. GEODON [Suspect]
     Active Substance: ZIPRASIDONE HYDROCHLORIDE\ZIPRASIDONE MESYLATE
     Route: 065
  8. REXULTI [Suspect]
     Active Substance: BREXPIPRAZOLE
     Indication: ANXIETY
     Route: 048
  9. SEROQUEL [Suspect]
     Active Substance: QUETIAPINE FUMARATE
     Indication: AGORAPHOBIA
     Route: 048
  10. LATUDA [Suspect]
     Active Substance: LURASIDONE HYDROCHLORIDE
     Indication: ANXIETY
     Route: 048
  11. REXULTI [Suspect]
     Active Substance: BREXPIPRAZOLE
     Indication: ANXIETY
     Route: 048
  12. METFORMIN [Concomitant]
     Active Substance: METFORMIN HYDROCHLORIDE

REACTIONS (13)
  - Movement disorder [Recovered/Resolved]
  - Hunger [Recovering/Resolving]
  - Malaise [Recovered/Resolved]
  - Anxiety [Recovering/Resolving]
  - Off label use [Unknown]
  - Headache [Recovered/Resolved]
  - Paraesthesia [Recovered/Resolved]
  - Nervous system disorder [Recovered/Resolved]
  - Drug ineffective [Unknown]
  - Gastrooesophageal reflux disease [Unknown]
  - Weight increased [Not Recovered/Not Resolved]
  - Insulin resistance [Unknown]
  - Fatigue [Recovering/Resolving]
